FAERS Safety Report 4718796-8 (Version None)
Quarter: 2005Q3

REPORT INFORMATION
  Report Type: 
  Country: None (occurrence: None)
  Receive Date: 20050719
  Receipt Date: 20050711
  Transmission Date: 20060218
  Serious: Yes (Other)
  Sender: FDA-Public Use
  Company Number: 2005099165

PATIENT
  Sex: Female

DRUGS (2)
  1. LIPITOR [Suspect]
     Indication: ILL-DEFINED DISORDER
     Dates: start: 20050401
  2. ASPIRIN [Concomitant]

REACTIONS (3)
  - BLINDNESS [None]
  - OPTIC DISC VASCULAR DISORDER [None]
  - OPTIC NERVE DISORDER [None]
